FAERS Safety Report 6821132-4 (Version None)
Quarter: 2010Q3

REPORT INFORMATION
  Report Type: 
  Country: None (occurrence: None)
  Receive Date: 20100707
  Receipt Date: 20080324
  Transmission Date: 20110219
  Serious: No
  Sender: FDA-Public Use
  Company Number: US-PFIZER INC-2008026520

PATIENT
  Sex: Male
  Weight: 109.09 kg

DRUGS (6)
  1. ZOLOFT [Suspect]
     Indication: ANXIETY
     Dates: start: 20050101, end: 20050101
  2. LYRICA [Concomitant]
  3. XANAX [Concomitant]
  4. OXYCONTIN [Concomitant]
  5. OXYCODONE HCL [Concomitant]
  6. AMBIEN [Concomitant]

REACTIONS (1)
  - DRUG INEFFECTIVE [None]
